FAERS Safety Report 16484222 (Version 1)
Quarter: 2019Q3

REPORT INFORMATION
  Report Type: Spontaneous
  Country: US (occurrence: US)
  Receive Date: 20190625
  Receipt Date: 20190625
  Transmission Date: 20191004
  Serious: Yes (Hospitalization)
  Sender: FDA-Public Use
  Company Number: None

PATIENT
  Age: 73 Year
  Sex: Female

DRUGS (5)
  1. CEFUROXINE TAB 500 MG [Concomitant]
  2. LEVOTHYROXIN TAB 125 MG [Concomitant]
  3. ENBREL [Suspect]
     Active Substance: ETANERCEPT
     Indication: RHEUMATOID ARTHRITIS
     Dosage: ?          OTHER FREQUENCY:EVERY 7 DAYS;?
     Route: 058
     Dates: start: 20180124
  4. PREDNISONE TAB 20 MG [Concomitant]
  5. NITROFURANTN CAP 100 MG [Concomitant]

REACTIONS (1)
  - Chronic obstructive pulmonary disease [None]
